FAERS Safety Report 6577053-8 (Version None)
Quarter: 2010Q1

REPORT INFORMATION
  Report Type: 
  Country: None (occurrence: None)
  Receive Date: 20100210
  Receipt Date: 20090716
  Transmission Date: 20100710
  Serious: Yes (Hospitalization, Other)
  Sender: FDA-Public Use
  Company Number: US-BAYER-200832828NA

PATIENT
  Age: 50 Year
  Sex: Male
  Weight: 83 kg

DRUGS (12)
  1. MAGNEVIST [Suspect]
     Indication: NUCLEAR MAGNETIC RESONANCE IMAGING
     Dates: start: 20060821, end: 20060821
  2. RENAGEL [Concomitant]
  3. NEPHRO-VITE [Concomitant]
  4. NIASPAN [Concomitant]
     Indication: BLOOD CHOLESTEROL INCREASED
  5. NORVASC [Concomitant]
     Indication: ANGINA PECTORIS
  6. METOPROLOL TARTRATE [Concomitant]
     Indication: CHEST PAIN
  7. DARBEPOETIN [Concomitant]
     Indication: ANAEMIA
     Dosage: WITH DIALYSIS
  8. PARACALCITRIOL [Concomitant]
  9. PHOSLO [Concomitant]
     Indication: HYPERPHOSPHATAEMIA
  10. NEXIUM [Concomitant]
  11. EPOGEN [Concomitant]
  12. CALCITRIOL [Concomitant]

REACTIONS (6)
  - ASTHENIA [None]
  - CONTRAST MEDIA REACTION [None]
  - NAUSEA [None]
  - PAIN IN EXTREMITY [None]
  - PYREXIA [None]
  - VOMITING [None]
